FAERS Safety Report 6644231-9 (Version None)
Quarter: 2010Q1

REPORT INFORMATION
  Report Type: 
  Country: None (occurrence: None)
  Receive Date: 20100317
  Receipt Date: 20100304
  Transmission Date: 20100710
  Serious: Yes (Other)
  Sender: FDA-Public Use
  Company Number: 1000011527

PATIENT
  Sex: Male
  Weight: 3.6 kg

DRUGS (1)
  1. FOSFOMYCIN (FOSFOMYCIN TROMETAMOL) (GRANULATE) [Suspect]
     Dosage: 3 GM, ONCE, TRANSPLACENTAL
     Route: 064
     Dates: start: 20090602, end: 20090602

REACTIONS (4)
  - CAESAREAN SECTION [None]
  - HYDROCELE [None]
  - MATERNAL DRUGS AFFECTING FOETUS [None]
  - PENILE SIZE REDUCED [None]
